FAERS Safety Report 10094368 (Version 2)
Quarter: 2014Q2

REPORT INFORMATION
  Report Type: Spontaneous
  Country: FR (occurrence: FR)
  Receive Date: 20140422
  Receipt Date: 20140506
  Transmission Date: 20141212
  Serious: Yes (Life-Threatening, Hospitalization)
  Sender: FDA-Public Use
  Company Number: FR-JNJFOC-20140411913

PATIENT
  Age: 78 Year
  Sex: Male
  Weight: 69.84 kg

DRUGS (8)
  1. XARELTO [Suspect]
     Indication: CEREBROVASCULAR ACCIDENT PROPHYLAXIS
     Route: 048
     Dates: start: 2013, end: 20140407
  2. XARELTO [Suspect]
     Indication: ATRIAL FIBRILLATION
     Route: 048
     Dates: start: 2013, end: 20140407
  3. AMLOR [Concomitant]
     Route: 065
  4. BISOPROLOL [Concomitant]
     Route: 065
  5. COAPROVEL [Concomitant]
     Route: 065
  6. AMLODIPINE [Concomitant]
     Route: 065
  7. METFORMINE [Concomitant]
     Route: 065
  8. INEGY [Concomitant]
     Route: 065

REACTIONS (1)
  - Cerebral haemorrhage [Recovering/Resolving]
